FAERS Safety Report 23319001 (Version 1)
Quarter: 2023Q4

REPORT INFORMATION
  Report Type: Spontaneous
  Country: US (occurrence: US)
  Receive Date: 20231220
  Receipt Date: 20231220
  Transmission Date: 20240110
  Serious: No
  Sender: FDA-Public Use
  Company Number: US-Accord-360857

PATIENT
  Age: 45 Year
  Sex: Female
  Weight: 54.43 kg

DRUGS (1)
  1. BUPROPION HYDROCHLORIDE [Suspect]
     Active Substance: BUPROPION HYDROCHLORIDE
     Indication: Bipolar II disorder
     Dosage: EXTENDED-RELEASE TABLETS, STRENGTH: 150 XL

REACTIONS (6)
  - Nausea [Unknown]
  - Flatulence [Unknown]
  - Panic attack [Unknown]
  - Product substitution issue [Unknown]
  - Product odour abnormal [Unknown]
  - Off label use [Unknown]
